FAERS Safety Report 22067416 (Version 2)
Quarter: 2023Q1

REPORT INFORMATION
  Report Type: Spontaneous
  Country: GB (occurrence: GB)
  Receive Date: 20230307
  Receipt Date: 20230321
  Transmission Date: 20230417
  Serious: Yes (Other)
  Sender: FDA-Public Use
  Company Number: GB-MHRA-ADR 27705345

PATIENT
  Sex: Male

DRUGS (1)
  1. CIPROFLOXACIN [Suspect]
     Active Substance: CIPROFLOXACIN
     Indication: Product used for unknown indication
     Dosage: UNK
     Route: 065

REACTIONS (24)
  - Insomnia [Recovered/Resolved]
  - Arthralgia [Recovered/Resolved]
  - Asthenia [Recovered/Resolved]
  - Dyspnoea [Recovered/Resolved]
  - Palpitations [Recovering/Resolving]
  - Blood pressure fluctuation [Recovering/Resolving]
  - Pulse abnormal [Recovered/Resolved]
  - Urinary incontinence [Recovered/Resolved]
  - Anal incontinence [Recovered/Resolved]
  - Gait disturbance [Recovered/Resolved]
  - Body temperature abnormal [Recovered/Resolved]
  - Visual impairment [Recovered/Resolved]
  - Oversensing [Recovered/Resolved]
  - Neuropathy peripheral [Recovering/Resolving]
  - Photosensitivity reaction [Recovered/Resolved]
  - Heart rate irregular [Recovering/Resolving]
  - Bladder disorder [Recovering/Resolving]
  - Gastrointestinal motility disorder [Recovering/Resolving]
  - Temperature regulation disorder [Recovering/Resolving]
  - Emotional distress [Recovered/Resolved]
  - Nightmare [Recovered/Resolved]
  - Diarrhoea [Recovering/Resolving]
  - Back pain [Not Recovered/Not Resolved]
  - Pollakiuria [Recovering/Resolving]
